FAERS Safety Report 22237947 (Version 1)
Quarter: 2023Q2

REPORT INFORMATION
  Report Type: Report from Study
  Country: KR (occurrence: KR)
  Receive Date: 20230421
  Receipt Date: 20230421
  Transmission Date: 20230721
  Serious: Yes (Hospitalization)
  Sender: FDA-Public Use
  Company Number: KR-BRISTOL-MYERS SQUIBB COMPANY-2023-048356

PATIENT
  Age: 67 Year
  Sex: Male
  Weight: 69 kg

DRUGS (19)
  1. DARATUMUMAB [Suspect]
     Active Substance: DARATUMUMAB
     Indication: Plasma cell myeloma
     Route: 058
     Dates: start: 20230302
  2. BORTEZOMIB [Suspect]
     Active Substance: BORTEZOMIB
     Indication: Plasma cell myeloma
     Route: 058
     Dates: start: 20230302
  3. DEXAMETHASONE [Concomitant]
     Active Substance: DEXAMETHASONE
     Indication: Plasma cell myeloma
     Route: 048
     Dates: start: 20230302
  4. ACYCLOVIR [Concomitant]
     Active Substance: ACYCLOVIR
     Indication: Prophylaxis
     Route: 048
     Dates: start: 20230214
  5. ALLOPURINOL [Concomitant]
     Active Substance: ALLOPURINOL
     Indication: Prophylaxis
     Dosage: 100 MG
     Route: 048
     Dates: start: 20230228
  6. ASPIRIN [Concomitant]
     Active Substance: ASPIRIN
     Indication: Hyperlipidaemia
     Dosage: 100 MG
     Route: 048
     Dates: start: 20220622
  7. DEXCHLORPHENIRAMINE [Concomitant]
     Active Substance: DEXCHLORPHENIRAMINE
     Indication: Product used for unknown indication
     Dosage: 4 MG
     Route: 048
     Dates: start: 20230316, end: 20230316
  8. DEXCHLORPHENIRAMINE [Concomitant]
     Active Substance: DEXCHLORPHENIRAMINE
     Dosage: 4 MG
     Route: 048
     Dates: start: 20230320, end: 20230320
  9. DICAMAX D PLUS [Concomitant]
     Indication: Osteoporosis
     Dosage: 1 TABLET
     Route: 048
     Dates: start: 20210514
  10. ERDOSTEINE [Concomitant]
     Active Substance: ERDOSTEINE
     Indication: Adverse event
     Dosage: 300 MG
     Route: 048
     Dates: start: 20230330, end: 20230403
  11. HARMONILAN [Concomitant]
     Indication: Adverse event
     Dosage: 1 BAG
     Route: 048
     Dates: start: 20230313
  12. LAFUTIDINE [Concomitant]
     Active Substance: LAFUTIDINE
     Indication: Adverse event
     Dosage: 10 MG
     Route: 048
     Dates: start: 20230316
  13. MIDODRINE [Concomitant]
     Active Substance: MIDODRINE
     Indication: Hypotension
     Dosage: 2.5 MG
     Route: 048
     Dates: start: 20220913, end: 20230403
  14. ULTRACET [Concomitant]
     Active Substance: ACETAMINOPHEN\TRAMADOL HYDROCHLORIDE
     Indication: Back pain
     Dosage: 1 TABLET?FREQUENCY : PRN
     Route: 048
     Dates: start: 20230309
  15. GEMIGLIPTIN\METFORMIN [Concomitant]
     Active Substance: GEMIGLIPTIN\METFORMIN
     Indication: Diabetes mellitus
     Route: 048
     Dates: start: 20230309
  16. ACETAMINOPHEN [Concomitant]
     Active Substance: ACETAMINOPHEN
     Route: 048
     Dates: start: 20230316, end: 20230316
  17. ACETAMINOPHEN [Concomitant]
     Active Substance: ACETAMINOPHEN
     Route: 048
     Dates: start: 20230320, end: 20230320
  18. MAGNESIUM OXIDE [Concomitant]
     Active Substance: MAGNESIUM OXIDE
     Route: 048
     Dates: start: 20230316
  19. PITAVASTATIN [Concomitant]
     Active Substance: PITAVASTATIN
     Indication: Hyperlipidaemia
     Route: 048
     Dates: start: 20200625

REACTIONS (1)
  - Emphysema [Recovering/Resolving]

NARRATIVE: CASE EVENT DATE: 20230403
